FAERS Safety Report 16776716 (Version 1)
Quarter: 2019Q4

REPORT INFORMATION
  Report Type: Spontaneous
  Country: US (occurrence: US)
  Receive Date: 20190905
  Receipt Date: 20190905
  Transmission Date: 20200122
  Serious: Yes (Life-Threatening)
  Sender: FDA-Public Use
  Company Number: None

PATIENT
  Age: 53 Year
  Sex: Female

DRUGS (1)
  1. ALPRAZOLAM. [Suspect]
     Active Substance: ALPRAZOLAM
     Indication: ANXIETY
     Route: 048
     Dates: start: 20190904, end: 20190904

REACTIONS (4)
  - Eye pruritus [None]
  - Swelling [None]
  - Product substitution issue [None]
  - Throat irritation [None]

NARRATIVE: CASE EVENT DATE: 20190904
